FAERS Safety Report 7620626-1 (Version None)
Quarter: 2011Q3

REPORT INFORMATION
  Report Type: 
  Country: None (occurrence: None)
  Receive Date: 20110719
  Receipt Date: 20110706
  Transmission Date: 20111222
  Serious: Yes (Hospitalization, Other)
  Sender: FDA-Public Use
  Company Number: RU-UCBSA-8019351

PATIENT
  Sex: Female
  Weight: 63.1 kg

DRUGS (6)
  1. CALCIUM-D3 NYCOMED [Concomitant]
     Indication: OSTEOPOROSIS
     Route: 048
     Dates: start: 20040801
  2. CERTOLIZUMAB PEGOL [Suspect]
     Indication: RHEUMATOID ARTHRITIS
     Dosage: - NR OF DOSES :9
     Route: 058
     Dates: start: 20060425, end: 20060921
  3. PREDNISOLONE [Concomitant]
     Indication: RHEUMATOID ARTHRITIS
     Route: 048
     Dates: start: 20040901
  4. METHOTREXATE [Concomitant]
     Indication: RHEUMATOID ARTHRITIS
     Route: 030
     Dates: start: 20040901, end: 20060921
  5. DICLOFENAC [Concomitant]
     Indication: RHEUMATOID ARTHRITIS
     Route: 048
     Dates: start: 20030901
  6. ACID FOLIC [Concomitant]
     Indication: RHEUMATOID ARTHRITIS
     Dosage: 1 MG 5 TIMES/WEEK
     Route: 048
     Dates: start: 20040901, end: 20060921

REACTIONS (1)
  - PULMONARY TUBERCULOSIS [None]
